FAERS Safety Report 7027088-6 (Version None)
Quarter: 2010Q4

REPORT INFORMATION
  Report Type: 
  Country: None (occurrence: None)
  Receive Date: 20101004
  Receipt Date: 20100923
  Transmission Date: 20110411
  Serious: Yes (Other)
  Sender: FDA-Public Use
  Company Number: CA-JNJFOC-20100908014

PATIENT
  Sex: Female
  Weight: 76 kg

DRUGS (6)
  1. REMICADE [Suspect]
     Indication: RHEUMATOID ARTHRITIS
     Route: 042
  2. REMICADE [Suspect]
     Route: 042
  3. METHOTREXATE [Concomitant]
  4. NAPROXEN [Concomitant]
  5. SYNTHROID [Concomitant]
  6. EFFEXOR [Concomitant]

REACTIONS (1)
  - FOOT OPERATION [None]
